FAERS Safety Report 5460842-0 (Version None)
Quarter: 2007Q3

REPORT INFORMATION
  Report Type: 
  Country: None (occurrence: None)
  Receive Date: 20070919
  Receipt Date: 20070910
  Transmission Date: 20080115
  Serious: No
  Sender: FDA-Public Use
  Company Number: US-BOEHRINGER INGELHEIM PHARMACEUTICALS, INC.-2007-BP-17093BP

PATIENT
  Age: 62 Year
  Sex: Female

DRUGS (6)
  1. COMBIVENT [Suspect]
     Indication: CHRONIC OBSTRUCTIVE PULMONARY DISEASE
     Route: 055
     Dates: start: 20050627
  2. VICODIN [Concomitant]
  3. DIOVAN HCT [Concomitant]
  4. ATROVENT [Concomitant]
  5. EFFEXOR [Concomitant]
  6. PREVACID [Concomitant]

REACTIONS (2)
  - DYSGEUSIA [None]
  - ORAL DISCOMFORT [None]
